FAERS Safety Report 12548648 (Version 1)
Quarter: 2016Q3

REPORT INFORMATION
  Report Type: Spontaneous
  Country: US (occurrence: US)
  Receive Date: 20160712
  Receipt Date: 20160712
  Transmission Date: 20161109
  Serious: Yes (Other)
  Sender: FDA-Public Use
  Company Number: US-TEVA-597707USA

PATIENT

DRUGS (2)
  1. KEPPRA [Suspect]
     Active Substance: LEVETIRACETAM
     Indication: EPILEPSY
     Route: 065
  2. LAMOTRIGINE. [Suspect]
     Active Substance: LAMOTRIGINE
     Indication: EPILEPSY
     Route: 065

REACTIONS (8)
  - Head discomfort [Unknown]
  - Confusional state [Unknown]
  - Feeling hot [Unknown]
  - Disturbance in attention [Unknown]
  - Amnesia [Unknown]
  - Drug ineffective [Unknown]
  - Fatigue [Unknown]
  - Seizure [Unknown]
